FAERS Safety Report 13010935 (Version 1)
Quarter: 2016Q4

REPORT INFORMATION
  Report Type: Spontaneous
  Country: PL (occurrence: PL)
  Receive Date: 20161208
  Receipt Date: 20161208
  Transmission Date: 20170207
  Serious: Yes (Other)
  Sender: FDA-Public Use
  Company Number: PL-TEVA-717644ACC

PATIENT
  Sex: Female

DRUGS (1)
  1. SEASONIQUE [Suspect]
     Active Substance: ETHINYL ESTRADIOL\LEVONORGESTREL

REACTIONS (7)
  - Heart rate increased [Unknown]
  - Migraine [Unknown]
  - Heart rate irregular [Unknown]
  - Dyspnoea [Unknown]
  - Visual field defect [Unknown]
  - Dizziness [Unknown]
  - Insomnia [Unknown]
